FAERS Safety Report 15346024 (Version 2)
Quarter: 2019Q2

REPORT INFORMATION
  Report Type: Report from Study
  Country: CA (occurrence: CA)
  Receive Date: 20180904
  Receipt Date: 20190625
  Transmission Date: 20190711
  Serious: Yes (Other)
  Sender: FDA-Public Use
  Company Number: CA-BRISTOL-MYERS SQUIBB COMPANY-BMS-2018-080188

PATIENT
  Age: 92 Year
  Sex: Female

DRUGS (1)
  1. ABATACEPT [Suspect]
     Active Substance: ABATACEPT
     Indication: RHEUMATOID ARTHRITIS
     Dosage: 125 MILLIGRAM, QWK
     Route: 058
     Dates: start: 20180529

REACTIONS (4)
  - Skin ulcer [Unknown]
  - Accident [Unknown]
  - Wound infection [Recovering/Resolving]
  - Kidney infection [Unknown]

NARRATIVE: CASE EVENT DATE: 201809
